FAERS Safety Report 8255570-2 (Version None)
Quarter: 2012Q2

REPORT INFORMATION
  Report Type: 
  Country: None (occurrence: None)
  Receive Date: 20120403
  Receipt Date: 20120327
  Transmission Date: 20120825
  Serious: Yes (Hospitalization, Disabling, Other)
  Sender: FDA-Public Use
  Company Number: DE-SANOFI-AVENTIS-2011SA023740

PATIENT
  Age: 72 Year
  Sex: Female
  Weight: 80 kg

DRUGS (9)
  1. MABTHERA [Concomitant]
     Dates: start: 20110701
  2. ARAVA [Suspect]
     Route: 048
     Dates: start: 20110101, end: 20110101
  3. ETANERCEPT [Suspect]
     Indication: RHEUMATOID ARTHRITIS
     Route: 058
     Dates: start: 20100830
  4. DEKRISTOL [Concomitant]
     Indication: OSTEOPOROSIS
     Dosage: 2000 IU WEEKLY
     Route: 048
  5. ARAVA [Suspect]
     Indication: RHEUMATOID ARTHRITIS
     Route: 048
     Dates: start: 20080801, end: 20110102
  6. LEVOTHYROXINE SODIUM [Concomitant]
     Indication: HYPOTHYROIDISM
     Route: 065
  7. METOPROLOL TARTRATE [Concomitant]
     Indication: HYPERTENSION
     Route: 065
  8. ARAVA [Suspect]
     Route: 048
     Dates: start: 20110103
  9. ALENDRONATE SODIUM [Concomitant]
     Indication: OSTEOPOROSIS
     Dosage: 70 MG WEEKLY
     Route: 048

REACTIONS (7)
  - PANCYTOPENIA [None]
  - URINARY TRACT INFECTION [None]
  - ENTEROCOLITIS BACTERIAL [None]
  - BONE MARROW TOXICITY [None]
  - GASTROENTERITIS ROTAVIRUS [None]
  - LEUKOPENIA [None]
  - HEPATIC CIRRHOSIS [None]
